FAERS Safety Report 7497177-0 (Version None)
Quarter: 2011Q2

REPORT INFORMATION
  Report Type: 
  Country: None (occurrence: None)
  Receive Date: 20110523
  Receipt Date: 20110513
  Transmission Date: 20111010
  Serious: Yes (Other)
  Sender: FDA-Public Use
  Company Number: PA-ELI_LILLY_AND_COMPANY-PA201105004461

PATIENT
  Age: 59 Year
  Sex: Male

DRUGS (3)
  1. BYETTA [Suspect]
     Indication: TYPE 2 DIABETES MELLITUS
     Dosage: 10 UG, UNKNOWN
     Dates: start: 20090901
  2. BIGUANIDES [Concomitant]
  3. INSULIN [Concomitant]

REACTIONS (2)
  - OFF LABEL USE [None]
  - COLON CANCER [None]
